FAERS Safety Report 4941247-5 (Version None)
Quarter: 2006Q1

REPORT INFORMATION
  Report Type: 
  Country: None (occurrence: None)
  Receive Date: 20060310
  Receipt Date: 20060310
  Transmission Date: 20060701
  Serious: Yes (Death)
  Sender: FDA-Public Use
  Company Number: None

PATIENT
  Sex: Female
  Weight: 10 kg

DRUGS (3)
  1. CYCLOPHOSPHAMIDE [Suspect]
     Indication: NEUROBLASTOMA
     Dosage: 1400 MG
     Dates: start: 20060216, end: 20060217
  2. DOXORUBICIN HCL [Suspect]
     Dosage: 24.9 MG
     Dates: start: 20060216, end: 20060218
  3. MESNA [Suspect]
     Dosage: 840 MG
     Dates: start: 20060216, end: 20060218

REACTIONS (5)
  - ABDOMINAL COMPARTMENT SYNDROME [None]
  - ACUTE RESPIRATORY DISTRESS SYNDROME [None]
  - PNEUMONIA FUNGAL [None]
  - THERAPY NON-RESPONDER [None]
  - TUMOUR HAEMORRHAGE [None]
